FAERS Safety Report 8831321 (Version 1)
Quarter: 2012Q4

REPORT INFORMATION
  Report Type: 
  Country: US (occurrence: US)
  Receive Date: 20121008
  Receipt Date: 20121008
  Transmission Date: 20130627
  Serious: No
  Sender: FDA-Public Use
  Company Number: US-VERTEX PHARMACEUTICAL INC.-2012-021390

PATIENT
  Age: 51 None
  Sex: Male

DRUGS (3)
  1. INCIVEK [Suspect]
     Indication: HEPATITIS C
     Dosage: 750 mg, tid
     Route: 048
     Dates: start: 20120619
  2. RIBAVIRIN [Suspect]
     Indication: HEPATITIS C
     Dosage: 800 mg AM, 600 mg PM
     Dates: start: 20120619
  3. PEGASYS [Suspect]
     Indication: HEPATITIS C
     Dosage: 180 ?g, UNK
     Route: 058
     Dates: start: 20120619

REACTIONS (6)
  - Lymphadenopathy [Recovered/Resolved]
  - Stomatitis [Recovered/Resolved]
  - Oral mucosal erythema [Unknown]
  - Oral pain [Recovered/Resolved]
  - Rash [Recovered/Resolved]
  - Nausea [Unknown]
